FAERS Safety Report 5303567-4 (Version None)
Quarter: 2007Q2

REPORT INFORMATION
  Report Type: 
  Country: None (occurrence: None)
  Receive Date: 20070420
  Receipt Date: 20070409
  Transmission Date: 20071010
  Serious: Yes (Other)
  Sender: FDA-Public Use
  Company Number: US-PFIZER INC-2007029240

PATIENT
  Sex: Female
  Weight: 52.2 kg

DRUGS (4)
  1. CHANTIX [Suspect]
     Indication: SMOKING CESSATION THERAPY
     Dates: start: 20070323, end: 20070408
  2. SYNTHROID [Concomitant]
     Indication: THYROID DISORDER
  3. VITAMIN E [Concomitant]
  4. FLAXSEED OIL [Concomitant]

REACTIONS (6)
  - DYSGEUSIA [None]
  - GINGIVAL PAIN [None]
  - MOUTH CYST [None]
  - ORAL MUCOSAL EXFOLIATION [None]
  - SOMNOLENCE [None]
  - TOOTHACHE [None]
